FAERS Safety Report 21368507 (Version 2)
Quarter: 2022Q4

REPORT INFORMATION
  Report Type: Spontaneous
  Country: CN (occurrence: CN)
  Receive Date: 20220923
  Receipt Date: 20221229
  Transmission Date: 20230113
  Serious: Yes (Death, Life-Threatening, Hospitalization, Other)
  Sender: FDA-Public Use
  Company Number: None

PATIENT
  Age: 35 Year
  Sex: Male

DRUGS (17)
  1. MYCOPHENOLATE MOFETIL [Suspect]
     Active Substance: MYCOPHENOLATE MOFETIL
     Indication: Immunosuppressant drug therapy
     Dosage: UNK
     Route: 065
  2. METHYLPREDNISOLONE [Suspect]
     Active Substance: METHYLPREDNISOLONE
     Indication: Immunosuppressant drug therapy
     Dosage: 80 MILLIGRAM
     Route: 065
  3. METHYLPREDNISOLONE [Suspect]
     Active Substance: METHYLPREDNISOLONE
     Indication: Delayed graft function
     Dosage: 21.15 MILLIGRAM/KILOGRAM
     Route: 065
  4. METHYLPREDNISOLONE [Suspect]
     Active Substance: METHYLPREDNISOLONE
     Dosage: 1000 MILLIGRAM
     Route: 065
  5. METHYLPREDNISOLONE [Suspect]
     Active Substance: METHYLPREDNISOLONE
     Dosage: 240 MILLIGRAM
     Route: 065
  6. METHYLPREDNISOLONE [Suspect]
     Active Substance: METHYLPREDNISOLONE
     Dosage: 500 MILLIGRAM
     Route: 065
  7. METHYLPREDNISOLONE [Suspect]
     Active Substance: METHYLPREDNISOLONE
     Dosage: 120 MILLIGRAM
     Route: 065
  8. METHYLPREDNISOLONE [Suspect]
     Active Substance: METHYLPREDNISOLONE
     Dosage: 40 MILLIGRAM
     Route: 065
  9. TACROLIMUS [Suspect]
     Active Substance: TACROLIMUS
     Indication: Immunosuppressant drug therapy
     Dosage: UNK
     Route: 065
  10. BASILIXIMAB [Suspect]
     Active Substance: BASILIXIMAB
     Indication: Delayed graft function
     Dosage: 20 MILLIGRAM
     Route: 065
  11. BASILIXIMAB [Suspect]
     Active Substance: BASILIXIMAB
     Indication: Immunosuppressant drug therapy
     Dosage: 0.24 MILLIGRAM/KILOGRAM
     Route: 065
  12. CYCLOSPORINE [Suspect]
     Active Substance: CYCLOSPORINE
     Indication: Infection
     Dosage: UNK
     Route: 065
  13. PREDNISONE [Suspect]
     Active Substance: PREDNISONE
     Indication: Immunosuppressant drug therapy
     Dosage: UNK
     Route: 065
  14. ANTI-THYMOCYTE GLOBULIN (RABBIT) NOS [Suspect]
     Active Substance: LAPINE T-LYMPHOCYTE IMMUNE GLOBULIN
     Indication: Delayed graft function
     Dosage: 25 MILLIGRAM
     Route: 065
  15. ANTI-THYMOCYTE GLOBULIN (RABBIT) NOS [Suspect]
     Active Substance: LAPINE T-LYMPHOCYTE IMMUNE GLOBULIN
     Dosage: 50 MILLIGRAM
     Route: 065
  16. ANTI-THYMOCYTE GLOBULIN (RABBIT) NOS [Suspect]
     Active Substance: LAPINE T-LYMPHOCYTE IMMUNE GLOBULIN
     Dosage: 1.83 MILLIGRAM/KILOGRAM
     Route: 065
  17. SULFAMETHOXAZOLE\TRIMETHOPRIM [Concomitant]
     Active Substance: SULFAMETHOXAZOLE\TRIMETHOPRIM
     Indication: Antifungal prophylaxis
     Dosage: UNK
     Route: 048

REACTIONS (15)
  - Anuria [Fatal]
  - Tricuspid valve incompetence [Fatal]
  - Acute myocardial infarction [Fatal]
  - Mitral valve incompetence [Fatal]
  - Angina pectoris [Fatal]
  - Disseminated intravascular coagulation [Fatal]
  - Endocarditis bacterial [Fatal]
  - Septic shock [Fatal]
  - Corynebacterium infection [Fatal]
  - Renal haemorrhage [Fatal]
  - Ventricular fibrillation [Fatal]
  - Cardiac arrest [Fatal]
  - Peripheral artery thrombosis [Fatal]
  - Enterococcal infection [Unknown]
  - Pseudomonas infection [Unknown]
